FAERS Safety Report 8763179 (Version 1)
Quarter: 2012Q4

REPORT INFORMATION
  Report Type: 
  Country: US (occurrence: US)
  Receive Date: 20120831
  Receipt Date: 20120831
  Transmission Date: 20130627
  Serious: No
  Sender: FDA-Public Use
  Company Number: US-PFIZER INC-2012212807

PATIENT
  Age: 40 Year
  Sex: Male
  Weight: 58.96 kg

DRUGS (3)
  1. NITROSTAT [Suspect]
     Indication: ISCHAEMIA
     Dosage: 0.3 mg, daily
     Route: 048
     Dates: start: 20120824
  2. CIALIS [Concomitant]
     Dosage: 5 mg, daily
  3. FLOMAX [Concomitant]
     Dosage: 0.4 mg, daily

REACTIONS (1)
  - Headache [Unknown]
